FAERS Safety Report 4296369-1 (Version None)
Quarter: 2004Q1

REPORT INFORMATION
  Report Type: 
  Country: None (occurrence: None)
  Receive Date: 20040217
  Receipt Date: 20030602
  Transmission Date: 20041129
  Serious: Yes (Hospitalization, Other)
  Sender: FDA-Public Use
  Company Number: 200315123US

PATIENT
  Sex: Female
  Weight: 97.3 kg

DRUGS (16)
  1. ARAVA [Suspect]
     Indication: RHEUMATOID ARTHRITIS
     Dosage: DOSE: UNK
     Dates: start: 20010926, end: 20011201
  2. METHOTREXATE [Concomitant]
     Dates: end: 20011201
  3. PREVACID [Concomitant]
  4. K-DUR 10 [Concomitant]
  5. FLONASE [Concomitant]
  6. LEUCOVORIN CALCIUM [Concomitant]
  7. SYNTHROID [Concomitant]
  8. DARVOCET-N 100 [Concomitant]
  9. VIOXX [Concomitant]
     Route: 048
     Dates: start: 20010804, end: 20020101
  10. PREDNISONE [Concomitant]
  11. AMBIEN [Concomitant]
  12. COVERA-HS [Concomitant]
  13. ALBUTEROL [Concomitant]
     Dosage: DOSE: UNK
     Route: 055
  14. DOXYCYCLINE [Concomitant]
  15. ATIVAN [Concomitant]
  16. . [Concomitant]

REACTIONS (18)
  - ABNORMAL FAECES [None]
  - ANOREXIA [None]
  - ANTINUCLEAR ANTIBODY POSITIVE [None]
  - ASTHENIA [None]
  - BLOOD GLUCOSE INCREASED [None]
  - BLOOD UREA DECREASED [None]
  - GASTRIC DISORDER [None]
  - HEPATIC FIBROSIS [None]
  - HEPATIC STEATOSIS [None]
  - HEPATITIS [None]
  - HEPATOCELLULAR DAMAGE [None]
  - MOBILITY DECREASED [None]
  - NAUSEA [None]
  - PARAESTHESIA [None]
  - PAROSMIA [None]
  - SINUS DISORDER [None]
  - VOMITING [None]
  - WEIGHT DECREASED [None]
